FAERS Safety Report 25727327 (Version 2)
Quarter: 2025Q3

REPORT INFORMATION
  Report Type: Spontaneous
  Country: TR (occurrence: TR)
  Receive Date: 20250826
  Receipt Date: 20250910
  Transmission Date: 20251021
  Serious: Yes (Hospitalization, Other)
  Sender: ORGANON
  Company Number: TR-ORGANON-O2508TUR001827

PATIENT
  Age: 46 Year
  Sex: Male
  Weight: 110 kg

DRUGS (47)
  1. COZAAR [Suspect]
     Active Substance: LOSARTAN POTASSIUM
     Indication: IgA nephropathy
     Dosage: 100 MILLIGRAM, QD
     Route: 048
     Dates: start: 20200612, end: 20230611
  2. ANTI ASIDOZ [Concomitant]
     Dates: start: 20230530, end: 20230611
  3. D COLEFOR [Concomitant]
     Dates: start: 20230530, end: 20230611
  4. METOCLOPRAMIDE [Concomitant]
     Active Substance: METOCLOPRAMIDE
     Dates: start: 20230530, end: 20230611
  5. DEXTROSE [Concomitant]
     Active Substance: DEXTROSE MONOHYDRATE
     Dates: start: 20230614, end: 20230614
  6. GRAFALON [Concomitant]
     Active Substance: LAPINE T-LYMPHOCYTE IMMUNE GLOBULIN
     Dates: start: 20230613, end: 20230616
  7. ISOTONIC SODIUM CHLORIDE SOLUTION [Concomitant]
     Active Substance: SODIUM CHLORIDE
     Dates: start: 20230613, end: 20230619
  8. PANTOPRAZOLE SODIUM [Concomitant]
     Active Substance: PANTOPRAZOLE SODIUM
     Dates: start: 20230613, end: 20230619
  9. PAROL [Concomitant]
     Active Substance: ACETAMINOPHEN
     Dates: start: 20230613, end: 20230614
  10. METHYLPREDNISOLONE [Concomitant]
     Active Substance: METHYLPREDNISOLONE
     Dates: start: 20230613, end: 20230614
  11. PROGRAF [Concomitant]
     Active Substance: TACROLIMUS
     Dates: start: 20230614, end: 20230619
  12. NEBIVOLOL HYDROCHLORIDE [Concomitant]
     Active Substance: NEBIVOLOL HYDROCHLORIDE
     Dates: start: 20230614, end: 20230618
  13. NIFEDIPINE [Concomitant]
     Active Substance: NIFEDIPINE
     Dates: start: 20230613, end: 20230619
  14. CALCIUM PICKEN [Concomitant]
     Dates: start: 20230614, end: 20230619
  15. PRILOCAINE HYDROCHLORIDE [Concomitant]
     Active Substance: PRILOCAINE HYDROCHLORIDE
     Dates: start: 20230614, end: 20230614
  16. TRAMADOL HYDROCHLORIDE [Concomitant]
     Active Substance: TRAMADOL HYDROCHLORIDE
     Dates: start: 20230614, end: 20230614
  17. DORMICUM [NITRAZEPAM] [Concomitant]
     Dates: start: 20230614, end: 20230614
  18. HUMULIN R [Concomitant]
     Active Substance: INSULIN HUMAN
     Dates: start: 20230614, end: 20230619
  19. IZOLEKS P %5 DEKSTROZ [Concomitant]
     Dates: start: 20230614, end: 20230619
  20. NEVPARIN [Concomitant]
     Dates: start: 20230614, end: 20230619
  21. NOREPINEPHRINE BITARTRATE [Concomitant]
     Active Substance: NOREPINEPHRINE BITARTRATE
     Dates: start: 20230614, end: 20230619
  22. OMEREF [Concomitant]
     Dates: start: 20230614, end: 20230619
  23. PROPOFOL [Concomitant]
     Active Substance: PROPOFOL
     Dates: start: 20230614, end: 20230619
  24. RENTANIL [Concomitant]
     Dates: start: 20230614, end: 20230614
  25. SUPRANE [Concomitant]
     Active Substance: DESFLURANE
     Dates: start: 20230614, end: 20230619
  26. ZOFRAN [Concomitant]
     Active Substance: ONDANSETRON HYDROCHLORIDE
     Dates: start: 20230614, end: 20230617
  27. XANAX [Concomitant]
     Active Substance: ALPRAZOLAM
     Dates: start: 20230613, end: 20230613
  28. CELLCEPT [Concomitant]
     Active Substance: MYCOPHENOLATE MOFETIL
     Dates: start: 20230613, end: 20230616
  29. PHENIRAMINE MALEATE [Concomitant]
     Active Substance: PHENIRAMINE MALEATE
     Dates: start: 20230613, end: 20230616
  30. CALCIMAX D3 [CALCIUM CARBONATE;COLECALCIFEROL] [Concomitant]
  31. ACETAMINOPHEN\CAFFEINE\CODEINE PHOSPHATE [Concomitant]
     Active Substance: ACETAMINOPHEN\CAFFEINE\CODEINE PHOSPHATE
  32. SEPTONAT [Concomitant]
  33. LERCADIP [LERCANIDIPINE] [Concomitant]
  34. ALLOPURINOL [Concomitant]
     Active Substance: ALLOPURINOL
  35. LANSOPRAZOLE [Concomitant]
     Active Substance: LANSOPRAZOLE
  36. ASPIRIN [Concomitant]
     Active Substance: ASPIRIN
  37. NEBIVOLOL HYDROCHLORIDE [Concomitant]
     Active Substance: NEBIVOLOL HYDROCHLORIDE
  38. SEDOLOR [AMINOPHENAZONE;CAFFEINE;PHENACETIN] [Concomitant]
  39. BACTRIM [Concomitant]
     Active Substance: SULFAMETHOXAZOLE\TRIMETHOPRIM
  40. CITOVIR [Concomitant]
  41. METICURE [Concomitant]
  42. ALBUTEROL SULFATE\IPRATROPIUM BROMIDE [Concomitant]
     Active Substance: ALBUTEROL SULFATE\IPRATROPIUM BROMIDE
  43. VOCHERON [Concomitant]
  44. PANTONIX [Concomitant]
  45. PARTEMOL [Concomitant]
  46. MYCOPHENOLATE MOFETIL [Concomitant]
     Active Substance: MYCOPHENOLATE MOFETIL
  47. TRAMOSEL [Concomitant]

REACTIONS (3)
  - Chronic kidney disease [Recovered/Resolved]
  - Condition aggravated [Recovered/Resolved]
  - Product use in unapproved indication [Unknown]

NARRATIVE: CASE EVENT DATE: 20200612
